FAERS Safety Report 17987054 (Version 1)
Quarter: 2020Q3

REPORT INFORMATION
  Report Type: Spontaneous
  Country: CA (occurrence: CA)
  Receive Date: 20200707
  Receipt Date: 20200707
  Transmission Date: 20201103
  Serious: Yes (Hospitalization, Other)
  Sender: FDA-Public Use
  Company Number: CA-TEVA-2020-CA-1796420

PATIENT
  Age: 50 Year
  Sex: Female

DRUGS (43)
  1. AMLODIPINE BESILATE [Suspect]
     Active Substance: AMLODIPINE BESYLATE
     Indication: COMPLEX REGIONAL PAIN SYNDROME
     Route: 065
  2. HYDROXYCHLOROQUINE SULFATE. [Suspect]
     Active Substance: HYDROXYCHLOROQUINE SULFATE
     Indication: COMPLEX REGIONAL PAIN SYNDROME
     Route: 065
  3. KETAMINE [Suspect]
     Active Substance: KETAMINE
     Route: 048
  4. TRAZODONE [Concomitant]
     Active Substance: TRAZODONE HYDROCHLORIDE
     Indication: INSOMNIA
     Route: 065
  5. DILTIAZEM. [Interacting]
     Active Substance: DILTIAZEM
     Indication: COMPLEX REGIONAL PAIN SYNDROME
     Route: 065
  6. PREDNISONE. [Interacting]
     Active Substance: PREDNISONE
     Dosage: 95 MILLIGRAM DAILY;
     Route: 065
  7. PREDNISONE. [Interacting]
     Active Substance: PREDNISONE
     Route: 065
  8. PREGABALIN. [Interacting]
     Active Substance: PREGABALIN
     Indication: COMPLEX REGIONAL PAIN SYNDROME
     Route: 065
  9. BUMETANIDE. [Suspect]
     Active Substance: BUMETANIDE
     Indication: COMPLEX REGIONAL PAIN SYNDROME
     Route: 065
  10. PALMITOYLETHANOLAMIDE [Suspect]
     Active Substance: PALMIDROL
     Indication: COMPLEX REGIONAL PAIN SYNDROME
     Route: 065
  11. PENTOXIFYLLINE. [Suspect]
     Active Substance: PENTOXIFYLLINE
     Indication: COMPLEX REGIONAL PAIN SYNDROME
     Route: 065
  12. SPIRONOLACTONE. [Interacting]
     Active Substance: SPIRONOLACTONE
     Indication: COMPLEX REGIONAL PAIN SYNDROME
     Route: 065
  13. MAGNESIUM [Interacting]
     Active Substance: MAGNESIUM
     Indication: COMPLEX REGIONAL PAIN SYNDROME
     Route: 065
  14. MEMANTINE. [Interacting]
     Active Substance: MEMANTINE
     Indication: COMPLEX REGIONAL PAIN SYNDROME
     Route: 065
  15. MEXILETINE [Interacting]
     Active Substance: MEXILETINE
     Indication: COMPLEX REGIONAL PAIN SYNDROME
     Route: 065
  16. NALTREXONE HYDROCHLORIDE. [Interacting]
     Active Substance: NALTREXONE HYDROCHLORIDE
     Indication: COMPLEX REGIONAL PAIN SYNDROME
     Dosage: 4.5 MILLIGRAM DAILY;
     Route: 065
  17. PREDNISONE. [Interacting]
     Active Substance: PREDNISONE
     Dosage: 85 MILLIGRAM DAILY;
     Route: 065
  18. PREDNISONE. [Interacting]
     Active Substance: PREDNISONE
     Route: 065
  19. LIDOCAINE. [Suspect]
     Active Substance: LIDOCAINE
     Indication: COMPLEX REGIONAL PAIN SYNDROME
     Route: 042
  20. METPROLOL [Suspect]
     Active Substance: METOPROLOL
     Indication: COMPLEX REGIONAL PAIN SYNDROME
     Route: 065
  21. EZETIMIBE. [Concomitant]
     Active Substance: EZETIMIBE
     Indication: HYPERLIPIDAEMIA
     Route: 065
  22. PREDNISONE. [Interacting]
     Active Substance: PREDNISONE
     Indication: COMPLEX REGIONAL PAIN SYNDROME
     Route: 065
  23. IBUDILAST [Suspect]
     Active Substance: IBUDILAST
     Indication: COMPLEX REGIONAL PAIN SYNDROME
     Route: 065
  24. LIDOCAINE. [Suspect]
     Active Substance: LIDOCAINE
     Route: 061
  25. PREDNISONE. [Interacting]
     Active Substance: PREDNISONE
     Route: 065
  26. APREMILAST [Suspect]
     Active Substance: APREMILAST
     Indication: COMPLEX REGIONAL PAIN SYNDROME
     Route: 065
  27. CAPSAICIN. [Suspect]
     Active Substance: CAPSAICIN
     Indication: COMPLEX REGIONAL PAIN SYNDROME
     Route: 061
  28. VITAMIN B2 [Suspect]
     Active Substance: RIBOFLAVIN
     Indication: MIGRAINE PROPHYLAXIS
  29. VITAMIN C [Suspect]
     Active Substance: ASCORBIC ACID
     Indication: COMPLEX REGIONAL PAIN SYNDROME
     Route: 065
  30. AMITRIPTYLINE [Interacting]
     Active Substance: AMITRIPTYLINE
     Indication: COMPLEX REGIONAL PAIN SYNDROME
     Route: 065
  31. CLONIDINE. [Interacting]
     Active Substance: CLONIDINE
     Indication: COMPLEX REGIONAL PAIN SYNDROME
     Route: 065
  32. CALCITONIN [Suspect]
     Active Substance: CALCITONIN
     Indication: COMPLEX REGIONAL PAIN SYNDROME
     Route: 065
  33. LITHIUM CARBONATE. [Suspect]
     Active Substance: LITHIUM CARBONATE
     Indication: COMPLEX REGIONAL PAIN SYNDROME
     Route: 065
  34. N?ACETYLCYSTEINE [Suspect]
     Active Substance: ACETYLCYSTEINE
     Indication: COMPLEX REGIONAL PAIN SYNDROME
     Route: 065
  35. VITAMIN B2 [Suspect]
     Active Substance: RIBOFLAVIN
     Indication: COMPLEX REGIONAL PAIN SYNDROME
     Route: 065
  36. MAGNESIUM [Interacting]
     Active Substance: MAGNESIUM
     Indication: MIGRAINE PROPHYLAXIS
  37. MONTELUKAST [Interacting]
     Active Substance: MONTELUKAST SODIUM
     Indication: COMPLEX REGIONAL PAIN SYNDROME
     Route: 065
  38. MYCOPHENOLATE MOFETIL. [Interacting]
     Active Substance: MYCOPHENOLATE MOFETIL
     Indication: COMPLEX REGIONAL PAIN SYNDROME
     Route: 065
  39. KETAMINE [Suspect]
     Active Substance: KETAMINE
     Route: 061
  40. ANAKINRA [Suspect]
     Active Substance: ANAKINRA
     Indication: COMPLEX REGIONAL PAIN SYNDROME
     Route: 065
  41. CIMETIDINE [Suspect]
     Active Substance: CIMETIDINE
     Indication: COMPLEX REGIONAL PAIN SYNDROME
     Route: 065
  42. ETANERCEPT [Suspect]
     Active Substance: ETANERCEPT
     Indication: COMPLEX REGIONAL PAIN SYNDROME
     Route: 065
  43. KETAMINE [Suspect]
     Active Substance: KETAMINE
     Indication: COMPLEX REGIONAL PAIN SYNDROME
     Route: 042

REACTIONS (21)
  - Body tinea [Recovered/Resolved]
  - Cellulitis [Recovered/Resolved]
  - Contusion [Recovered/Resolved]
  - Poor quality sleep [Recovered/Resolved]
  - Herpes zoster [Recovered/Resolved]
  - Glucose tolerance impaired [Recovered/Resolved]
  - Weight increased [Recovered/Resolved]
  - Cataract [Recovered/Resolved]
  - Hypertension [Recovered/Resolved]
  - Drug ineffective [Recovered/Resolved]
  - Insomnia [Recovered/Resolved]
  - Impaired quality of life [Recovered/Resolved]
  - Infection susceptibility increased [Recovered/Resolved]
  - Inhibitory drug interaction [Recovered/Resolved]
  - Oral herpes [Recovered/Resolved]
  - Hyperlipidaemia [Recovered/Resolved]
  - Impaired work ability [Recovered/Resolved]
  - Bone density decreased [Recovered/Resolved]
  - Fatigue [Recovered/Resolved]
  - Purpura [Recovered/Resolved]
  - Skin disorder [Recovered/Resolved]
